FAERS Safety Report 5157951-2 (Version None)
Quarter: 2006Q4

REPORT INFORMATION
  Report Type: 
  Country: None (occurrence: None)
  Receive Date: 20061116
  Receipt Date: 20061106
  Transmission Date: 20070319
  Serious: Yes (Other)
  Sender: FDA-Public Use
  Company Number: 2006096166

PATIENT
  Sex: Male
  Weight: 104.3273 kg

DRUGS (4)
  1. VIAGRA [Suspect]
     Indication: ERECTILE DYSFUNCTION
     Dosage: 100 MG (100 MG, AS NECESSARY), ORAL
     Route: 048
     Dates: end: 20060101
  2. ATENOLOL [Concomitant]
  3. LIPITOR [Concomitant]
  4. ASPIRIN [Concomitant]

REACTIONS (8)
  - ARTERIAL OCCLUSIVE DISEASE [None]
  - BLINDNESS UNILATERAL [None]
  - MACULAR ISCHAEMIA [None]
  - PHOTOPSIA [None]
  - SCOTOMA [None]
  - THROMBOSIS [None]
  - VISION BLURRED [None]
  - VISUAL DISTURBANCE [None]
